FAERS Safety Report 6067764-5 (Version None)
Quarter: 2009Q1

REPORT INFORMATION
  Report Type: 
  Country: None (occurrence: None)
  Receive Date: 20090203
  Receipt Date: 20090120
  Transmission Date: 20090719
  Serious: Yes (Death, Hospitalization)
  Sender: FDA-Public Use
  Company Number: 2009000007

PATIENT
  Sex: Female
  Weight: 92.9874 kg

DRUGS (7)
  1. ERLOTINIB (ERLOTINIB) (TABLET) (ERLOTINIB) [Suspect]
     Indication: NON-SMALL CELL LUNG CANCER
     Dosage: (150 MG), ORAL
     Route: 048
     Dates: start: 20081202, end: 20081226
  2. SORAFENIB / PLACEBO [Suspect]
     Indication: NON-SMALL CELL LUNG CANCER
     Dosage: (800 MG), ORAL
     Route: 048
     Dates: start: 20081202, end: 20081226
  3. COMPLETE MULTIVITAMINS (MULTIVITAMINS) [Concomitant]
  4. ACTOS [Concomitant]
  5. LOW DOSE ASA (ACETYLSALICYLIC ACID) [Concomitant]
  6. ZETIA [Concomitant]
  7. VITAMIN B12 [Concomitant]

REACTIONS (14)
  - BLOOD PRESSURE DECREASED [None]
  - BREATH SOUNDS ABNORMAL [None]
  - CORONARY ARTERY DISEASE [None]
  - DEPRESSED LEVEL OF CONSCIOUSNESS [None]
  - DYSPNOEA [None]
  - GENERAL PHYSICAL HEALTH DETERIORATION [None]
  - HYPOXIA [None]
  - METASTASES TO LIVER [None]
  - OEDEMA [None]
  - PAIN [None]
  - PRODUCTIVE COUGH [None]
  - SPUTUM DISCOLOURED [None]
  - THERAPEUTIC RESPONSE DECREASED [None]
  - TYPE 2 DIABETES MELLITUS [None]
